FAERS Safety Report 4985881-5 (Version None)
Quarter: 2006Q2

REPORT INFORMATION
  Report Type: 
  Country: None (occurrence: None)
  Receive Date: 20060421
  Receipt Date: 20060417
  Transmission Date: 20061013
  Serious: Yes (Hospitalization)
  Sender: FDA-Public Use
  Company Number: DEWYE558418APR06

PATIENT
  Age: 46 Year
  Sex: Female

DRUGS (3)
  1. VENLAFAXINE HCL [Suspect]
     Indication: OVERDOSE
     Dosage: OVERDOSE AMOUNT
     Route: 048
     Dates: start: 20060416, end: 20060416
  2. BUSPIRONE HCL [Suspect]
     Route: 048
     Dates: start: 20060416, end: 20060416
  3. TRUXAL (CLORPROTHIXENE HYDROCHLORIDE, , ) [Suspect]
     Route: 048
     Dates: start: 20060416, end: 20060416

REACTIONS (7)
  - BLOOD CREATINE PHOSPHOKINASE INCREASED [None]
  - BLOOD PH DECREASED [None]
  - HAEMATOMA [None]
  - HYPOTHERMIA [None]
  - INTENTIONAL OVERDOSE [None]
  - SOMNOLENCE [None]
  - SUICIDE ATTEMPT [None]
